FAERS Safety Report 13411335 (Version 2)
Quarter: 2017Q4

REPORT INFORMATION
  Report Type: Spontaneous
  Country: US (occurrence: US)
  Receive Date: 20170406
  Receipt Date: 20171123
  Transmission Date: 20180320
  Serious: No
  Sender: FDA-Public Use
  Company Number: US-JNJFOC-20170307871

PATIENT
  Age: 17 Year
  Sex: Male

DRUGS (6)
  1. RISPERDAL M-TAB [Suspect]
     Active Substance: RISPERIDONE
     Indication: IRRITABILITY
     Dosage: VARYING DOSE OF 0.5 MG TO 1.0 MG
     Route: 048
     Dates: start: 20060821, end: 20080910
  2. RISPERIDONE. [Suspect]
     Active Substance: RISPERIDONE
     Indication: IRRITABILITY
     Route: 048
     Dates: start: 20080926, end: 20090409
  3. RISPERDAL [Suspect]
     Active Substance: RISPERIDONE
     Indication: SLEEP DISORDER
     Route: 048
     Dates: start: 20090422
  4. RISPERDAL M-TAB [Suspect]
     Active Substance: RISPERIDONE
     Indication: SLEEP DISORDER
     Dosage: VARYING DOSE OF 0.5 MG TO 1.0 MG
     Route: 048
     Dates: start: 20060821, end: 20080910
  5. RISPERIDONE. [Suspect]
     Active Substance: RISPERIDONE
     Indication: SLEEP DISORDER
     Route: 048
     Dates: start: 20080926, end: 20090409
  6. RISPERDAL [Suspect]
     Active Substance: RISPERIDONE
     Indication: IRRITABILITY
     Route: 048
     Dates: start: 20090422

REACTIONS (4)
  - Emotional disorder [Unknown]
  - Product use in unapproved indication [Unknown]
  - Gynaecomastia [Unknown]
  - Off label use [Unknown]

NARRATIVE: CASE EVENT DATE: 20060821
